FAERS Safety Report 8182005-0 (Version None)
Quarter: 2012Q1

REPORT INFORMATION
  Report Type: 
  Country: None (occurrence: None)
  Receive Date: 20120302
  Receipt Date: 20120301
  Transmission Date: 20120608
  Serious: Yes (Other)
  Sender: FDA-Public Use
  Company Number: US-ABBOTT-12P-163-0903917-00

PATIENT
  Sex: Female

DRUGS (5)
  1. VENTOLIN [Concomitant]
     Indication: DYSPNOEA
  2. ADVAIR DISKUS 100/50 [Concomitant]
     Dosage: SUPPOSED TO TAKE EVERY DAY
     Dates: start: 20101201
  3. HUMIRA [Suspect]
     Indication: RHEUMATOID ARTHRITIS
     Dates: start: 20120125, end: 20120207
  4. HUMIRA [Suspect]
     Dates: start: 20120215
  5. ADVAIR DISKUS 100/50 [Concomitant]
     Indication: ASTHMA
     Dosage: 1 PUFF AS NEEDED WHEN OUT OF BREATH
     Dates: start: 20101201

REACTIONS (4)
  - BLINDNESS [None]
  - EYE PAIN [None]
  - INJECTION SITE PAIN [None]
  - INFLUENZA [None]
